FAERS Safety Report 8331843-X (Version None)
Quarter: 2012Q2

REPORT INFORMATION
  Report Type: 
  Country: None (occurrence: None)
  Receive Date: 20120502
  Receipt Date: 20120424
  Transmission Date: 20120825
  Serious: No
  Sender: FDA-Public Use
  Company Number: US-AMGEN-USASP2012025908

PATIENT
  Age: 56 Year
  Sex: Female

DRUGS (1)
  1. ENBREL [Suspect]
     Indication: RHEUMATOID ARTHRITIS
     Dosage: 50 MG, QWK
     Dates: start: 20110901

REACTIONS (13)
  - MUSCULAR WEAKNESS [None]
  - MALAISE [None]
  - INJECTION SITE PAIN [None]
  - DRUG INEFFECTIVE [None]
  - INJURY [None]
  - ARTHRALGIA [None]
  - DIZZINESS [None]
  - PRESYNCOPE [None]
  - RHEUMATOID ARTHRITIS [None]
  - SENSORY LOSS [None]
  - NEUROPATHY PERIPHERAL [None]
  - WRONG TECHNIQUE IN DRUG USAGE PROCESS [None]
  - INJECTION SITE HAEMORRHAGE [None]
